FAERS Safety Report 6612508-9 (Version None)
Quarter: 2010Q1

REPORT INFORMATION
  Report Type: 
  Country: None (occurrence: None)
  Receive Date: 20100223
  Receipt Date: 20100218
  Transmission Date: 20100710
  Serious: Yes (Hospitalization, Other)
  Sender: FDA-Public Use
  Company Number: 2009011854

PATIENT
  Age: 61 Year
  Sex: Male

DRUGS (1)
  1. TREANDA [Suspect]
     Indication: CHRONIC LYMPHOCYTIC LEUKAEMIA
     Dosage: (DAYS 1 AND 2; RECEIVED 3 CYCLES, INTRAVENOUS
     Route: 042
     Dates: start: 20090611, end: 20090807

REACTIONS (2)
  - ARTHRITIS BACTERIAL [None]
  - NEUTROPENIA [None]
